FAERS Safety Report 5248617-9 (Version None)
Quarter: 2007Q1

REPORT INFORMATION
  Report Type: 
  Country: None (occurrence: None)
  Receive Date: 20070222
  Receipt Date: 20070206
  Transmission Date: 20070707
  Serious: Yes (Hospitalization)
  Sender: FDA-Public Use
  Company Number: 010876

PATIENT
  Age: 16 Year
  Sex: Female

DRUGS (1)
  1. ANTABUSE [Suspect]
     Indication: ALCOHOLISM
     Dosage: 500 MG, 2/WEEK, UNK

REACTIONS (14)
  - ABDOMINAL PAIN UPPER [None]
  - ANTINUCLEAR ANTIBODY POSITIVE [None]
  - COAGULATION FACTOR V LEVEL DECREASED [None]
  - COAGULOPATHY [None]
  - HEPATIC ENCEPHALOPATHY [None]
  - HEPATIC FAILURE [None]
  - HEPATIC FUNCTION ABNORMAL [None]
  - HEPATIC NECROSIS [None]
  - JAUNDICE [None]
  - LIVER FUNCTION TEST ABNORMAL [None]
  - LIVER TRANSPLANT [None]
  - MALAISE [None]
  - NAUSEA [None]
  - VOMITING [None]
